FAERS Safety Report 10022889 (Version 4)
Quarter: 2014Q2

REPORT INFORMATION
  Report Type: Spontaneous
  Country: US (occurrence: US)
  Receive Date: 20140319
  Receipt Date: 20140529
  Transmission Date: 20141212
  Serious: Yes (Hospitalization)
  Sender: FDA-Public Use
  Company Number: US-GILEAD-2014-0097235

PATIENT
  Sex: Female

DRUGS (3)
  1. LETAIRIS [Suspect]
     Indication: PULMONARY ARTERIAL HYPERTENSION
     Dosage: 10 MG, QD
     Route: 065
     Dates: start: 20100528
  2. REMODULIN [Concomitant]
  3. REVATIO [Concomitant]

REACTIONS (6)
  - Chest pain [Unknown]
  - Ovarian cyst [Unknown]
  - Gastrointestinal disorder [Unknown]
  - Abdominal pain [Unknown]
  - Dyspnoea [Unknown]
  - Paranasal sinus discomfort [Unknown]
